FAERS Safety Report 24948096 (Version 1)
Quarter: 2025Q1

REPORT INFORMATION
  Report Type: Spontaneous
  Country: GB (occurrence: GB)
  Receive Date: 20250210
  Receipt Date: 20250210
  Transmission Date: 20250408
  Serious: No
  Sender: ALKEM
  Company Number: None

PATIENT
  Age: 68 Year
  Sex: Female
  Weight: 79 kg

DRUGS (5)
  1. EZETIMIBE [Suspect]
     Active Substance: EZETIMIBE
     Indication: Product used for unknown indication
     Dosage: UNK, QD (ONE TO BE TAKEN EACH DAY)
     Route: 065
     Dates: start: 20231218, end: 20240304
  2. AMITRIPTYLINE [Concomitant]
     Active Substance: AMITRIPTYLINE
     Indication: Pain
     Route: 065
     Dates: start: 20231218
  3. ASPIRIN [Concomitant]
     Active Substance: ASPIRIN
     Indication: Product used for unknown indication
     Dosage: UNK, QD (ONE TO BE TAKEN EACH DAY)
     Route: 065
     Dates: start: 20231218
  4. ATORVASTATIN [Concomitant]
     Active Substance: ATORVASTATIN
     Indication: Type IIa hyperlipidaemia
     Dosage: UNK, QD (ONE TO BE TAKEN EACH DAY)
     Route: 065
     Dates: start: 20240304
  5. EZETIMIBE [Concomitant]
     Active Substance: EZETIMIBE
     Indication: Product used for unknown indication
     Dosage: UNK, QD (ONE TO BE TAKEN EACH DAY)
     Route: 065
     Dates: start: 20231218, end: 20231218

REACTIONS (1)
  - Vision blurred [Recovered/Resolved]

NARRATIVE: CASE EVENT DATE: 20231218
